FAERS Safety Report 9958974 (Version 1)
Quarter: 2014Q1

REPORT INFORMATION
  Report Type: Spontaneous
  Country: US (occurrence: None)
  Receive Date: 20140228
  Receipt Date: 20140228
  Transmission Date: 20141002
  Serious: No
  Sender: FDA-Public Use
  Company Number: None

PATIENT
  Age: 50 Year
  Sex: Female
  Weight: 63.5 kg

DRUGS (2)
  1. POLYMYXIN B SULFATE\TRIMETHOPRIM [Suspect]
     Indication: EYE INFECTION
     Dosage: EVERY 3 HRS FOR 7 DAYS
     Route: 047
     Dates: start: 20140215, end: 20140216
  2. DAILY VITAMIN [Concomitant]

REACTIONS (3)
  - Eye irritation [None]
  - Eye pruritus [None]
  - Eye swelling [None]
